FAERS Safety Report 14304568 (Version 1)
Quarter: 2017Q4

REPORT INFORMATION
  Report Type: Spontaneous
  Country: JP (occurrence: JP)
  Receive Date: 20171219
  Receipt Date: 20171219
  Transmission Date: 20180321
  Serious: Yes (Hospitalization)
  Sender: FDA-Public Use
  Company Number: JP-OTSUKA-011852

PATIENT
  Age: 75 Year
  Sex: Female
  Weight: 37.3 kg

DRUGS (11)
  1. CO-DIOVAN [Concomitant]
     Active Substance: HYDROCHLOROTHIAZIDE\VALSARTAN
     Dosage: TABLET
     Dates: start: 20091204, end: 20101104
  2. ZOSYN [Concomitant]
     Active Substance: PIPERACILLIN SODIUM\TAZOBACTAM SODIUM
     Dosage: 9 G, DAILY DOSE
     Route: 041
     Dates: start: 20101104, end: 20101108
  3. ABILIFY [Suspect]
     Active Substance: ARIPIPRAZOLE
     Dosage: 12 MG, BID
     Route: 048
     Dates: start: 20100604, end: 20101107
  4. MAGMITT [Concomitant]
     Active Substance: MAGNESIUM OXIDE
     Indication: CONSTIPATION
     Dosage: 330 MG, TID
     Route: 048
     Dates: start: 20100407, end: 20101107
  5. CO-DIO [Concomitant]
     Active Substance: HYDROCHLOROTHIAZIDE\VALSARTAN
     Indication: HYPERTENSION
     Dosage: 1 DF, QD
     Route: 048
     Dates: start: 20091204, end: 20101104
  6. LENDEM [Concomitant]
     Indication: INSOMNIA
     Dosage: 0.25 MG, QD
     Route: 048
     Dates: start: 20100424, end: 20101107
  7. AMLODIPINE [Concomitant]
     Active Substance: AMLODIPINE BESYLATE
     Indication: HYPERTENSION
     Dosage: 5 MG, QD
     Route: 048
     Dates: start: 20101105, end: 20101107
  8. ABILIFY [Suspect]
     Active Substance: ARIPIPRAZOLE
     Dosage: 6 MG~12MG, BID
     Route: 048
     Dates: start: 20100507, end: 20100603
  9. SENNOSIDE [Concomitant]
     Active Substance: SENNOSIDES
     Indication: CONSTIPATION
     Dosage: 36 MG, QD
     Route: 048
     Dates: start: 20100330, end: 20101107
  10. ABILIFY [Suspect]
     Active Substance: ARIPIPRAZOLE
     Indication: SCHIZOPHRENIA
     Dosage: 6 MG, BID
     Route: 048
     Dates: start: 20100407, end: 20100506
  11. SENNA [Concomitant]
     Active Substance: SENNA LEAF\SENNOSIDES\SENNOSIDES A AND B
     Dosage: 12 MG, UNK
     Dates: start: 20100330, end: 20101107

REACTIONS (3)
  - Seizure [Recovered/Resolved]
  - Hypothermia [Recovered/Resolved]
  - Altered state of consciousness [Recovered/Resolved]

NARRATIVE: CASE EVENT DATE: 20101103
